FAERS Safety Report 8376523-X (Version None)
Quarter: 2012Q2

REPORT INFORMATION
  Report Type: 
  Country: None (occurrence: None)
  Receive Date: 20120518
  Receipt Date: 20120509
  Transmission Date: 20120825
  Serious: Yes (Hospitalization, Disabling)
  Sender: FDA-Public Use
  Company Number: AXC-2012-000107

PATIENT
  Age: 70 Year
  Sex: Female
  Weight: 57.1 kg

DRUGS (1)
  1. MESALAMINE [Suspect]
     Indication: COLITIS
     Dosage: 2000 MG BID, ORAL
     Route: 048
     Dates: start: 20120228, end: 20120307

REACTIONS (10)
  - ABASIA [None]
  - PNEUMONIA [None]
  - MUSCLE INJURY [None]
  - PROTEIN TOTAL DECREASED [None]
  - DYSPHAGIA [None]
  - OEDEMA PERIPHERAL [None]
  - PARALYSIS [None]
  - MUSCLE DISORDER [None]
  - BLOOD CALCIUM INCREASED [None]
  - PAIN [None]
